FAERS Safety Report 9611109 (Version 2)
Quarter: 2013Q4

REPORT INFORMATION
  Report Type: Spontaneous
  Country: US (occurrence: US)
  Receive Date: 20131009
  Receipt Date: 20131009
  Transmission Date: 20140711
  Serious: Yes (Hospitalization, Other)
  Sender: FDA-Public Use
  Company Number: US-RB-055261-13

PATIENT
  Sex: Female

DRUGS (5)
  1. SUBOXONE FILM [Suspect]
     Indication: DRUG DEPENDENCE
     Dosage: SUBOXONE FILM
     Route: 065
     Dates: start: 2011
  2. KLONOPIN [Suspect]
     Indication: PRODUCT USED FOR UNKNOWN INDICATION
     Route: 065
  3. XANAX [Suspect]
     Indication: PRODUCT USED FOR UNKNOWN INDICATION
     Dosage: UNKNOWN DOSING DETAILS
     Route: 065
  4. PROZAC [Concomitant]
     Indication: PRODUCT USED FOR UNKNOWN INDICATION
     Route: 065
  5. VISTARIL [Concomitant]
     Indication: ANXIETY
     Dosage: TAKEN EVERY 6 HOURS AS NEEDED.
     Route: 048

REACTIONS (3)
  - Drug interaction [Unknown]
  - Respiratory depression [Unknown]
  - Coma [Unknown]
